FAERS Safety Report 8533203 (Version 13)
Quarter: 2013Q3

REPORT INFORMATION
  Report Type: Spontaneous
  Country: US (occurrence: US)
  Receive Date: 20120427
  Receipt Date: 20130920
  Transmission Date: 20140515
  Serious: Yes (Congenital Anomaly, Other)
  Sender: FDA-Public Use
  Company Number: US-PFIZER INC-2012102151

PATIENT
  Sex: Female
  Weight: 3 kg

DRUGS (10)
  1. EFFEXOR XR [Suspect]
     Indication: DEPRESSION
     Dosage: 75 MG, 1X/DAY, IN THE MORNING
     Route: 064
     Dates: start: 20071008
  2. EFFEXOR XR [Suspect]
     Indication: IRRITABILITY
  3. EFFEXOR [Suspect]
     Indication: MAJOR DEPRESSION
     Dosage: 75 MG, 1X/DAY
     Route: 064
     Dates: start: 20080804, end: 20081223
  4. CHANTIX [Concomitant]
     Dosage: STARTER PACK
     Route: 064
     Dates: start: 20081024
  5. CHANTIX [Concomitant]
     Dosage: 1 MG, 2X/DAY
     Route: 064
     Dates: start: 20081107
  6. ZOFRAN [Concomitant]
     Dosage: 8 MG, 1X/DAY
     Route: 064
     Dates: start: 20080630
  7. PRENATAL VITAMINS [Concomitant]
     Indication: PREGNANCY
     Dosage: UNK
     Route: 064
  8. VISTARIL [Concomitant]
     Indication: BIPOLAR DISORDER
     Dosage: 25 MG, 1X/DAY
     Route: 064
  9. VISTARIL [Concomitant]
     Indication: ANXIETY
     Dosage: 50-100 MG, 1X/DAY, EVERY NIGHT AT BEDTIME
     Route: 064
     Dates: start: 20080923
  10. VISTARIL [Concomitant]
     Indication: INSOMNIA
     Dosage: 25-50 MG, 1X/DAY, AT BED TIME
     Route: 064
     Dates: start: 20081118

REACTIONS (15)
  - Maternal exposure during pregnancy [Unknown]
  - Congenital anomaly [Unknown]
  - Congenital cytomegalovirus infection [Unknown]
  - Microcephaly [Unknown]
  - Cerebral dysgenesis [Unknown]
  - Developmental hip dysplasia [Unknown]
  - Cerebral palsy [Unknown]
  - Talipes [Unknown]
  - Craniosynostosis [Unknown]
  - Scoliosis [Recovered/Resolved]
  - Upper respiratory tract infection [Unknown]
  - Jaundice neonatal [Unknown]
  - Developmental delay [Unknown]
  - Bronchiolitis [Unknown]
  - Eye disorder [Unknown]
